FAERS Safety Report 18747535 (Version 6)
Quarter: 2021Q3

REPORT INFORMATION
  Report Type: Spontaneous
  Country: PL (occurrence: PL)
  Receive Date: 20210115
  Receipt Date: 20210903
  Transmission Date: 20211014
  Serious: Yes (Other)
  Sender: FDA-Public Use
  Company Number: PL-JNJFOC-20210101959

PATIENT
  Age: 53 Year
  Sex: Female

DRUGS (3)
  1. ACICLOVIR [Concomitant]
     Active Substance: ACYCLOVIR
     Indication: PRODUCT USED FOR UNKNOWN INDICATION
  2. REMICADE [Suspect]
     Active Substance: INFLIXIMAB
     Indication: COLITIS ULCERATIVE
     Dosage: UNK
     Route: 042
  3. IMMUNOGLOBULINS NOS [Concomitant]
     Active Substance: IMMUNE GLOBULIN NOS
     Indication: PRODUCT USED FOR UNKNOWN INDICATION

REACTIONS (17)
  - Dysphonia [Recovered/Resolved]
  - Herpes virus infection [Recovered/Resolved]
  - Arthralgia [Recovered/Resolved]
  - Cell-mediated immune deficiency [Unknown]
  - Cough [Recovered/Resolved]
  - Influenza like illness [Recovered/Resolved]
  - Non-cardiac chest pain [Unknown]
  - Herpes oesophagitis [Recovered/Resolved]
  - Oesophagitis [Unknown]
  - Chest pain [Recovered/Resolved]
  - Pharyngitis [Unknown]
  - Herpes simplex [Recovering/Resolving]
  - Herpes pharyngitis [Recovered/Resolved]
  - Aphonia [Recovered/Resolved]
  - Oral herpes [Recovered/Resolved]
  - Infection [Unknown]
  - Pyrexia [Unknown]
